FAERS Safety Report 9066008 (Version 1)
Quarter: 2013Q1

REPORT INFORMATION
  Report Type: Report from Study
  Country: US (occurrence: US)
  Receive Date: 20130130
  Receipt Date: 20130130
  Transmission Date: 20140127
  Serious: No
  Sender: FDA-Public Use
  Company Number: US-ABBOTT-12P-163-0976169-00

PATIENT
  Age: 38 Year
  Sex: Female

DRUGS (15)
  1. HUMIRA [Suspect]
     Indication: RHEUMATOID ARTHRITIS
     Dates: start: 20120624
  2. FOLIC ACID [Concomitant]
     Indication: PRODUCT USED FOR UNKNOWN INDICATION
     Route: 048
  3. MORPHINE [Concomitant]
     Indication: PAIN
     Dosage: EVERY 8 HOURS AS NEEDED
     Route: 048
  4. LYRICA [Concomitant]
     Indication: JOINT DESTRUCTION
     Route: 048
  5. LYRICA [Concomitant]
     Indication: FIBROMYALGIA
  6. VITAMIN D [Concomitant]
     Indication: IMMUNODEFICIENCY
     Dosage: TWICE WEEKLY
  7. SOMA [Concomitant]
     Indication: MUSCLE SPASMS
     Dosage: AS NEEDED
     Route: 048
  8. BACLOFEN [Concomitant]
     Indication: MUSCLE SPASMS
     Dosage: AS NEEDED
     Route: 048
  9. DIAZEPAM [Concomitant]
     Indication: MUSCLE SPASMS
     Dosage: AS NEEDED
     Route: 048
  10. EFFEXOR [Concomitant]
     Indication: DEPRESSION
     Route: 048
  11. EFFEXOR [Concomitant]
     Indication: ANXIETY
  12. EFFEXOR [Concomitant]
     Indication: PANIC ATTACK
  13. TRAZODONE [Concomitant]
     Indication: SLEEP DISORDER THERAPY
     Dosage: AT BEDTIME
     Route: 048
  14. TRAZODONE [Concomitant]
     Indication: ANXIETY
  15. NEXIUM [Concomitant]
     Indication: GASTROOESOPHAGEAL REFLUX DISEASE
     Route: 048

REACTIONS (7)
  - Peroneal nerve palsy [Not Recovered/Not Resolved]
  - Rheumatoid arthritis [Not Recovered/Not Resolved]
  - Drug ineffective [Not Recovered/Not Resolved]
  - Rheumatoid arthritis [Not Recovered/Not Resolved]
  - Rheumatoid arthritis [Not Recovered/Not Resolved]
  - Pain in extremity [Not Recovered/Not Resolved]
  - Arthralgia [Not Recovered/Not Resolved]
